FAERS Safety Report 7837620 (Version 4)
Quarter: 2014Q2

REPORT INFORMATION
  Report Type: Spontaneous
  Country: US (occurrence: US)
  Receive Date: 20110302
  Receipt Date: 20131024
  Transmission Date: 20141212
  Serious: Yes (Life-Threatening, Hospitalization, Other)
  Sender: FDA-Public Use
  Company Number: US-PFIZER INC-2009266664

PATIENT
  Age: 3 Year
  Sex: Female

DRUGS (13)
  1. DILANTIN [Suspect]
     Indication: CONVULSION
     Dosage: 50 MG, 2X/DAY
     Route: 048
     Dates: start: 19921024
  2. DILANTIN [Suspect]
     Dosage: 50 MG, UNK
     Route: 048
     Dates: start: 19921025
  3. DILANTIN [Suspect]
     Dosage: 50MG EVERY MORNING AND 75MG EVERY NIGHT
     Route: 048
     Dates: start: 199210
  4. DILANTIN [Suspect]
     Dosage: 50 MG, 1X/DAY
     Route: 048
     Dates: start: 19921103, end: 19921107
  5. DILANTIN [Suspect]
     Dosage: 50MG EVERY MORNING AND 75MG EVERY NIGHT
     Route: 048
     Dates: start: 19921108, end: 1992
  6. DILANTIN [Suspect]
     Indication: CONVULSION
     Dosage: 150 MG, UNK
     Route: 042
     Dates: start: 19921025, end: 1992
  7. DILANTIN [Suspect]
     Dosage: 150 MG, UNK
     Route: 042
     Dates: start: 20081025
  8. ISONIAZID [Concomitant]
     Indication: TUBERCULOSIS
     Dosage: 150 MG, EVERY MORNING
     Route: 048
     Dates: start: 19921024, end: 19921120
  9. RIFAMPIN [Concomitant]
     Indication: TUBERCULOSIS
     Dosage: 300 MG, 1X/DAY
     Route: 048
     Dates: start: 19921025, end: 19921115
  10. PYRAZINAMIDE [Concomitant]
     Indication: TUBERCULOSIS
     Dosage: 250 MG, 1X/DAY
     Route: 048
     Dates: start: 19921025, end: 19921115
  11. PREDNISONE [Concomitant]
     Indication: TUBERCULOSIS
     Dosage: 5 MG, 3 TABLETS EVERY 12 HOURS
     Route: 048
     Dates: start: 19921025, end: 19921115
  12. KANAMYCIN [Concomitant]
     Indication: TUBERCULOSIS
     Dosage: 150 MG, 0.6 ML EVERY MORNING
     Route: 042
     Dates: start: 19921025, end: 19921110
  13. HEPARIN [Concomitant]
     Dosage: 10U/ML INJECTION IV, 1 ML EVERY 8 HOURS
     Route: 042
     Dates: start: 19921025, end: 19921112

REACTIONS (1)
  - Stevens-Johnson syndrome [Unknown]
